FAERS Safety Report 10666555 (Version 1)
Quarter: 2014Q4

REPORT INFORMATION
  Report Type: Spontaneous
  Country: JP (occurrence: JP)
  Receive Date: 20141221
  Receipt Date: 20141221
  Transmission Date: 20150529
  Serious: Yes (Life-Threatening, Disabling, Other)
  Sender: FDA-Public Use
  Company Number: JP-GLAXOSMITHKLINE-JP2014JPN036553

PATIENT
  Age: 97 Year
  Sex: Female
  Weight: 41 kg

DRUGS (3)
  1. AMLODIN [Concomitant]
     Active Substance: AMLODIPINE BESYLATE
     Dosage: 2.5 MG, QD
  2. ENPRAL [Concomitant]
     Dosage: 10 MG, QD
  3. VALTREX [Suspect]
     Active Substance: VALACYCLOVIR HYDROCHLORIDE
     Indication: HERPES ZOSTER
     Dosage: 1000 MG, TID
     Route: 048
     Dates: start: 20141027, end: 20141029

REACTIONS (2)
  - Acute kidney injury [Recovering/Resolving]
  - Toxic encephalopathy [Recovered/Resolved]

NARRATIVE: CASE EVENT DATE: 20141029
